FAERS Safety Report 24133182 (Version 1)
Quarter: 2024Q3

REPORT INFORMATION
  Report Type: Other
  Country: US (occurrence: US)
  Receive Date: 20240724
  Receipt Date: 20240724
  Transmission Date: 20241017
  Serious: Yes (Hospitalization)
  Sender: ALVOGEN
  Company Number: US-ALVOGEN-2024095048

PATIENT
  Sex: Female

DRUGS (1)
  1. FENTANYL [Suspect]
     Active Substance: FENTANYL\FENTANYL CITRATE
     Indication: Product used for unknown indication
     Route: 064

REACTIONS (4)
  - Oppositional defiant disorder [Unknown]
  - Disinhibited social engagement disorder of childhood [Unknown]
  - Attention deficit hyperactivity disorder [Unknown]
  - Maternal exposure during pregnancy [Unknown]
